FAERS Safety Report 4532618-X (Version None)
Quarter: 2004Q4

REPORT INFORMATION
  Report Type: 
  Country: None (occurrence: None)
  Receive Date: 20041220
  Receipt Date: 20041220
  Transmission Date: 20050328
  Serious: Yes (Other)
  Sender: FDA-Public Use
  Company Number: None

PATIENT
  Sex: Male
  Weight: 74.8435 kg

DRUGS (1)
  1. WARFARIN SODIUM [Suspect]
     Indication: INTRACARDIAC THROMBUS

REACTIONS (1)
  - NO THERAPEUTIC RESPONSE [None]
